FAERS Safety Report 24762299 (Version 5)
Quarter: 2025Q2

REPORT INFORMATION
  Report Type: Report from Study
  Country: US (occurrence: US)
  Receive Date: 20241221
  Receipt Date: 20250511
  Transmission Date: 20250717
  Serious: No
  Sender: SANOFI AVENTIS
  Company Number: US-SA-2024SA376551

PATIENT
  Age: 55 Year
  Sex: Male

DRUGS (2)
  1. DUPILUMAB [Suspect]
     Active Substance: DUPILUMAB
     Indication: Dermatitis
     Dosage: 300 MG, QOW
     Route: 058
  2. DUPILUMAB [Suspect]
     Active Substance: DUPILUMAB
     Indication: Dermatitis atopic

REACTIONS (7)
  - Injury associated with device [Unknown]
  - Device use error [Unknown]
  - Injection site pain [Unknown]
  - Injection site erythema [Unknown]
  - Dermatitis [Unknown]
  - Pruritus [Unknown]
  - Product use in unapproved indication [Unknown]
